FAERS Safety Report 9803300 (Version 2)
Quarter: 2014Q1

REPORT INFORMATION
  Report Type: Report from Study
  Country: BR (occurrence: BR)
  Receive Date: 20140108
  Receipt Date: 20140108
  Transmission Date: 20141002
  Serious: Yes (Hospitalization, Other)
  Sender: FDA-Public Use
  Company Number: PHHY2013BR142057

PATIENT
  Age: 47 Year
  Sex: Male
  Weight: 83 kg

DRUGS (5)
  1. DIOVAN [Suspect]
     Indication: HYPERTENSION
     Dosage: 80 MG, DAILY
     Route: 048
     Dates: start: 2005
  2. DIOVAN [Suspect]
     Dosage: 80 MG, BID
     Route: 048
  3. OMEPRAMED [Concomitant]
     Indication: ABDOMINAL DISCOMFORT
     Dosage: 20
     Route: 048
  4. OMEPRAMED [Concomitant]
     Indication: GASTRITIS
  5. OMEPRAZOLE [Concomitant]
     Indication: GASTRITIS
     Dosage: 20 MG, DAILY
     Route: 048

REACTIONS (5)
  - Hypertension [Recovering/Resolving]
  - Headache [Recovering/Resolving]
  - Umbilical hernia [Recovered/Resolved]
  - Hernia [Recovered/Resolved]
  - Gastrooesophageal reflux disease [Recovering/Resolving]
